FAERS Safety Report 16786257 (Version 1)
Quarter: 2019Q3

REPORT INFORMATION
  Report Type: Spontaneous
  Country: CH (occurrence: CH)
  Receive Date: 20190909
  Receipt Date: 20190909
  Transmission Date: 20191005
  Serious: Yes (Life-Threatening, Other)
  Sender: FDA-Public Use
  Company Number: CH-PFIZER INC-2019383910

PATIENT
  Age: 49 Year
  Sex: Female
  Weight: 62 kg

DRUGS (21)
  1. LITALIR [Suspect]
     Active Substance: HYDROXYUREA
     Indication: ACUTE MYELOID LEUKAEMIA
     Dosage: 4 G, DAILY (1 G IN THE MORNING AND AT NOON AND IN THE EVENING 2 G)
     Route: 048
     Dates: start: 20190813
  2. LASIX [Concomitant]
     Active Substance: FUROSEMIDE
     Dosage: 100 MG, DAILY (20 MG, 1-1-1-2)
     Route: 042
  3. PERFALGAN [Concomitant]
     Active Substance: ACETAMINOPHEN
     Dosage: 1000 MG, 1X/DAY (ADDITIONAL PERORAL)
     Route: 042
  4. CEFEPIME [Concomitant]
     Active Substance: CEFEPIME HYDROCHLORIDE
     Dosage: 2 G, UNK
     Route: 042
  5. AMPHO MORONAL [Concomitant]
     Active Substance: AMPHOTERICIN B
     Dosage: 100 MG, 4X/DAY (1-1-1-1)
     Route: 048
  6. NOVALGIN (METAMIZOLE SODIUM) [Concomitant]
     Active Substance: METAMIZOLE SODIUM
     Dosage: UNK UNK, 4X/DAY (1-1-1-1)
  7. ZYLORIC [Concomitant]
     Active Substance: ALLOPURINOL
     Dosage: 300 MG, 1X/DAY (0-0-1-0)
     Route: 048
  8. KONAKION MM [Concomitant]
     Active Substance: PHYTONADIONE
     Dosage: 10 MG, 1X/DAY (0-0-1)
     Route: 042
  9. HAEMOCOMPLETTAN P [Concomitant]
     Active Substance: FIBRINOGEN HUMAN
     Dosage: 2 G, 1X/DAY (ONE ADMINISTRATION ONLY)
     Route: 042
  10. IDARUBICIN HCL [Suspect]
     Active Substance: IDARUBICIN HYDROCHLORIDE
     Indication: ACUTE MYELOID LEUKAEMIA
     Dosage: 20 MG, UNK
     Route: 042
     Dates: start: 20190815
  11. ESOMEP [ESOMEPRAZOLE MAGNESIUM] [Concomitant]
     Dosage: 40 MG, 1X/DAY (1-0-0-0)
     Route: 048
  12. MAGNESIOCARD [Concomitant]
     Active Substance: MAGNESIUM ASPARTATE HYDROCHLORIDE
     Dosage: UNK, 1X/DAY (0-1-0-0)
     Route: 048
  13. PIPERACILLIN/TAZOBACTAM SANDOZ [Concomitant]
     Active Substance: PIPERACILLIN SODIUM\TAZOBACTAM SODIUM
     Dosage: 4.5 MG, UNK
     Route: 042
  14. ONDANSETRON TEVA [ONDANSETRON] [Concomitant]
     Dosage: 8 MG, UNK
     Route: 042
  15. MEPHAMESON [Concomitant]
     Active Substance: DEXAMETHASONE
     Dosage: 8 MG, UNK
  16. TEMESTA [LORAZEPAM] [Concomitant]
     Active Substance: LORAZEPAM
     Dosage: 1 MG, UNK
  17. CYTARABINE. [Suspect]
     Active Substance: CYTARABINE
     Indication: ACUTE MYELOID LEUKAEMIA
     Dosage: 350 MG, UNK
     Route: 042
     Dates: start: 20190815
  18. PERFALGAN [Concomitant]
     Active Substance: ACETAMINOPHEN
     Dosage: UNK
     Route: 048
  19. SIRDALUD [Concomitant]
     Active Substance: TIZANIDINE
     Dosage: 4 MG, 1X/DAY (0-0-1-0)
     Route: 048
  20. KALIUM HAUSMANN KCL [Concomitant]
     Dosage: 80 MMOL, DAILY (10 MMOL, (2-2-2-2))
     Route: 048
  21. POTASSIUM CHLORIDE. [Concomitant]
     Active Substance: POTASSIUM CHLORIDE
     Dosage: 40 MMOL, UNK
     Route: 042

REACTIONS (4)
  - Distributive shock [Not Recovered/Not Resolved]
  - Pulmonary embolism [Not Recovered/Not Resolved]
  - Tumour lysis syndrome [Not Recovered/Not Resolved]
  - Cardiogenic shock [Not Recovered/Not Resolved]

NARRATIVE: CASE EVENT DATE: 2019
